FAERS Safety Report 5614013-5 (Version None)
Quarter: 2008Q1

REPORT INFORMATION
  Report Type: 
  Country: None (occurrence: None)
  Receive Date: 20080205
  Receipt Date: 20080124
  Transmission Date: 20080703
  Serious: Yes (Hospitalization)
  Sender: FDA-Public Use
  Company Number: US-ROCHE-539006

PATIENT
  Age: 66 Year
  Sex: Male
  Weight: 75 kg

DRUGS (12)
  1. PEG-INTERFERON ALFA 2A (RO 25-8310) [Suspect]
     Indication: HEPATITIS C
     Dosage: REPORTED AS 25.7143 MCG (180 MCG, 1 IN 1 WK).
     Route: 058
     Dates: start: 20070613
  2. BLINDED VX-950 [Suspect]
     Indication: HEPATITIS C
     Route: 048
     Dates: start: 20070613
  3. XANAX [Concomitant]
     Indication: INSOMNIA
     Route: 048
  4. NORVASC [Concomitant]
     Route: 048
  5. COLACE [Concomitant]
     Route: 048
  6. NEXIUM [Concomitant]
     Route: 048
  7. LASIX [Concomitant]
     Route: 048
  8. LACTULOSE [Concomitant]
  9. LISINOPRIL [Concomitant]
     Route: 048
  10. OXYCODONE HCL [Concomitant]
     Route: 048
  11. COMPAZINE [Concomitant]
     Indication: NAUSEA
     Route: 048
  12. ULTRAM [Concomitant]
     Route: 048

REACTIONS (1)
  - RETINAL DETACHMENT [None]
